FAERS Safety Report 16805064 (Version 1)
Quarter: 2019Q3

REPORT INFORMATION
  Report Type: Spontaneous
  Country: GB (occurrence: GB)
  Receive Date: 20190913
  Receipt Date: 20190913
  Transmission Date: 20191005
  Serious: Yes (Other)
  Sender: FDA-Public Use
  Company Number: GB-AMGEN-GBRSP2019145380

PATIENT
  Age: 69 Year
  Sex: Female

DRUGS (7)
  1. OLANZAPINE. [Concomitant]
     Active Substance: OLANZAPINE
     Dosage: 7.5 MILLIGRAM, QD
  2. PREGABALIN. [Concomitant]
     Active Substance: PREGABALIN
     Indication: GENERALISED ANXIETY DISORDER
     Dosage: 75 MILLIGRAM, BID
  3. VENLAFAXINE [Concomitant]
     Active Substance: VENLAFAXINE HYDROCHLORIDE
     Dosage: 37.5 MILLIGRAM, QD
  4. PAMIDRONATE [Concomitant]
     Active Substance: PAMIDRONATE DISODIUM
  5. CINACALCET HCL [Suspect]
     Active Substance: CINACALCET HYDROCHLORIDE
     Indication: HYPERPARATHYROIDISM PRIMARY
     Dosage: 30 MILLIGRAM, BID
     Route: 065
  6. LORAZEPAM. [Concomitant]
     Active Substance: LORAZEPAM
     Dosage: 0. 5MG TO 1 MG, AS NECESSARY
  7. PREGABALIN. [Concomitant]
     Active Substance: PREGABALIN
     Dosage: 150 MILLIGRAM, QD

REACTIONS (4)
  - Hallucinations, mixed [Recovered/Resolved]
  - Hypervigilance [Recovered/Resolved]
  - Delusion [Recovered/Resolved]
  - Paranoia [Recovered/Resolved]
